FAERS Safety Report 9649999 (Version 1)
Quarter: 2013Q4

REPORT INFORMATION
  Report Type: Spontaneous
  Country: US (occurrence: US)
  Receive Date: 20131028
  Receipt Date: 20131028
  Transmission Date: 20140711
  Serious: No
  Sender: FDA-Public Use
  Company Number: US-PURDUE-USA-2012-0094989

PATIENT
  Age: 41 Year
  Sex: Female

DRUGS (3)
  1. OXYCONTIN (NDA 22-272) [Suspect]
     Indication: SICKLE CELL ANAEMIA
     Dosage: 60 MG, Q12H
     Route: 048
     Dates: start: 20121020, end: 20121021
  2. OXYCODONE [Concomitant]
     Indication: BREAKTHROUGH PAIN
     Dosage: 15 MG, Q4- 6H PRN
     Route: 048
     Dates: start: 2005
  3. FOLIC ACID [Concomitant]
     Indication: SICKLE CELL ANAEMIA
     Dosage: 5 MG, DAILY
     Route: 048

REACTIONS (4)
  - Drug hypersensitivity [Unknown]
  - Dyspnoea [Recovered/Resolved]
  - Dizziness [Recovered/Resolved]
  - Nervousness [Recovered/Resolved]
